FAERS Safety Report 10483267 (Version 1)
Quarter: 2014Q3

REPORT INFORMATION
  Report Type: Spontaneous
  Country: US (occurrence: US)
  Receive Date: 20140930
  Receipt Date: 20140930
  Transmission Date: 20150326
  Serious: Yes (Death)
  Sender: FDA-Public Use
  Company Number: 2014SP005495

PATIENT
  Age: 65 Year
  Sex: Male
  Weight: 86.8 kg

DRUGS (3)
  1. DAUNORUBICIN [Suspect]
     Active Substance: DAUNORUBICIN
     Indication: ACUTE MYELOID LEUKAEMIA
     Route: 040
     Dates: start: 20140630, end: 20140702
  2. PF-04449913 [Suspect]
     Active Substance: GLASDEGIB
     Indication: ACUTE MYELOID LEUKAEMIA
     Route: 048
     Dates: start: 20140627, end: 20140722
  3. CYTARABINE. [Suspect]
     Active Substance: CYTARABINE
     Indication: ACUTE MYELOID LEUKAEMIA
     Route: 042
     Dates: start: 20140630, end: 20140706

REACTIONS (2)
  - Acute myeloid leukaemia [Fatal]
  - Disease progression [Fatal]

NARRATIVE: CASE EVENT DATE: 20140626
